FAERS Safety Report 25539568 (Version 1)
Quarter: 2025Q3

REPORT INFORMATION
  Report Type: Spontaneous
  Country: JP (occurrence: JP)
  Receive Date: 20250710
  Receipt Date: 20250710
  Transmission Date: 20251021
  Serious: Yes (Life-Threatening, Other)
  Sender: INCYTE
  Company Number: JP-002147023-NVSJ2025JP007014

PATIENT

DRUGS (1)
  1. RUXOLITINIB [Suspect]
     Active Substance: RUXOLITINIB
     Indication: Myelofibrosis
     Route: 065

REACTIONS (5)
  - Anaemia [Unknown]
  - Infection [Unknown]
  - Peripheral sensory neuropathy [Unknown]
  - Thrombocytopenia [Unknown]
  - Vertigo [Unknown]
